FAERS Safety Report 5255784-X (Version None)
Quarter: 2007Q1

REPORT INFORMATION
  Report Type: 
  Country: None (occurrence: None)
  Receive Date: 20070228
  Receipt Date: 20070221
  Transmission Date: 20070707
  Serious: No
  Sender: FDA-Public Use
  Company Number: TCI2007A00721

PATIENT
  Age: 84 Year
  Sex: Female

DRUGS (9)
  1. ACTOS [Suspect]
     Indication: DIABETES MELLITUS
     Dosage: 15 MG (15 MG, 1 D) PER ORAL
     Route: 048
     Dates: start: 20061010, end: 20070213
  2. LASIX [Concomitant]
  3. QUINAPRIL HCL [Concomitant]
  4. LIPITOR [Concomitant]
  5. ATENOLOL [Concomitant]
  6. GLYBURIDE [Concomitant]
  7. VOGLIBOSE [Concomitant]
  8. CONIEL (BENIDIPINE HYDROCHLORIDE) [Concomitant]
  9. LOXONIN (LOXOPROFEN SODIUM) [Concomitant]

REACTIONS (3)
  - FALL [None]
  - PLEURAL EFFUSION [None]
  - RIB FRACTURE [None]
